FAERS Safety Report 5566519-5 (Version None)
Quarter: 2007Q4

REPORT INFORMATION
  Report Type: 
  Country: None (occurrence: None)
  Receive Date: 20071214
  Receipt Date: 20071205
  Transmission Date: 20080405
  Serious: Yes (Hospitalization)
  Sender: FDA-Public Use
  Company Number: CLOF-10796

PATIENT
  Age: 66 Year
  Sex: Female
  Weight: 95.4 kg

DRUGS (41)
  1. CLOFARABINE. MFR: GENZYME [Suspect]
     Indication: ACUTE MYELOID LEUKAEMIA
     Dosage: 66 MG QD X 5 IV
     Route: 042
     Dates: start: 20071009, end: 20071013
  2. CLOFARABINE. MFR: GENZYME [Suspect]
     Indication: ACUTE MYELOID LEUKAEMIA
     Dates: start: 20071126
  3. ESTRADIOL [Concomitant]
  4. SYNTHROID [Suspect]
     Dates: start: 20071126
  5. LIPITOR. MFR: PARKE, DAVIS AND COMPANY [Concomitant]
  6. METOPROLOL [Concomitant]
  7. AMIKACIN [Concomitant]
  8. PROTONIX. MFR: PHARMACIA CORPORATION [Concomitant]
  9. VALTREX. MFR: WELLCOME [Concomitant]
  10. PHENAZOPYRIDINE HCL TAB [Concomitant]
  11. ONDANSETRON [Concomitant]
  12. ALLOPURINOL [Concomitant]
  13. ACETAMINOPHEN [Concomitant]
  14. DIPHENHYDRAMINE HCL [Concomitant]
  15. ANUSOL. MFR: SUBSTANTIA LABS. [Concomitant]
  16. TRANXENE. MFR: CLIN-COMAR LABS. [Concomitant]
  17. DOMEBORO. MFR: MILES CONSUMER PRODUCTS [Concomitant]
  18. PROPOXYPHENE HYDROCHLORIDE [Concomitant]
  19. MAGNESIUM SULFATE [Concomitant]
  20. HYDROCORTISONE [Concomitant]
  21. MEROPENEM [Concomitant]
  22. LISINOPRIL [Concomitant]
  23. ATARAX. MFR: PFIZER LABORATORIES [Concomitant]
  24. LORAZEPAM [Concomitant]
  25. GLIMEPIRIDE [Concomitant]
  26. ESOMEPRAZOLE [Concomitant]
  27. PROMETHAZINE [Concomitant]
  28. POTASSIUM CHLORIDE [Concomitant]
  29. NOVOLIN. MFR: NOVO NORDISK [Concomitant]
  30. CANCIDAS [Concomitant]
  31. DAPTOMYCIN [Concomitant]
  32. DIPHENOXYLATE HCL W/ ATROPINE SULFATE [Concomitant]
  33. SALINE NASAL SPRAY [Concomitant]
  34. VANCOMYCIN [Concomitant]
  35. NDX [Concomitant]
  36. FLUCONAZOLE [Concomitant]
  37. FUROSEMIDE [Concomitant]
  38. AZTREONAM [Concomitant]
  39. LOMOTIL. MFR: SEARLE G.D. + COMPANY [Concomitant]
  40. ZOFRAN. MFR: GLAXO LABORATORIES LIMITED [Concomitant]
  41. OLMESARTAN MEDOXOMIL [Concomitant]

REACTIONS (5)
  - BLOOD PRESSURE DIASTOLIC DECREASED [None]
  - BODY TEMPERATURE DECREASED [None]
  - DIARRHOEA [None]
  - RENAL FAILURE ACUTE [None]
  - RESPIRATORY RATE INCREASED [None]
